FAERS Safety Report 4626926-1 (Version None)
Quarter: 2005Q2

REPORT INFORMATION
  Report Type: 
  Country: None (occurrence: None)
  Receive Date: 20050405
  Receipt Date: 20050324
  Transmission Date: 20051028
  Serious: Yes (Hospitalization)
  Sender: FDA-Public Use
  Company Number: 200512440GDDC

PATIENT
  Age: 41 Year
  Sex: Male

DRUGS (2)
  1. NICODERM [Suspect]
     Dosage: 21MG PER DAY
     Route: 062
     Dates: start: 20050214, end: 20050225
  2. CIPRO HC [Concomitant]
     Indication: EAR INFECTION

REACTIONS (4)
  - BLOOD CHOLESTEROL INCREASED [None]
  - CONVULSION [None]
  - HYPERTENSION [None]
  - IMPAIRED DRIVING ABILITY [None]
